FAERS Safety Report 16483250 (Version 2)
Quarter: 2020Q1

REPORT INFORMATION
  Report Type: Spontaneous
  Country: IN (occurrence: IN)
  Receive Date: 20190627
  Receipt Date: 20200213
  Transmission Date: 20200409
  Serious: Yes (Other)
  Sender: FDA-Public Use
  Company Number: IN-PFIZER INC-2019269670

PATIENT
  Sex: Female
  Weight: 89 kg

DRUGS (1)
  1. AROMASIN [Suspect]
     Active Substance: EXEMESTANE
     Indication: BREAST CANCER
     Dosage: 25 MG, UNK (180TABLETS)
     Route: 048
     Dates: start: 2016

REACTIONS (6)
  - Vitamin D deficiency [Unknown]
  - Type 2 diabetes mellitus [Unknown]
  - Hypercholesterolaemia [Unknown]
  - Chronic kidney disease [Unknown]
  - Neoplasm progression [Unknown]
  - Hand-foot-and-mouth disease [Unknown]
